FAERS Safety Report 11915747 (Version 1)
Quarter: 2016Q1

REPORT INFORMATION
  Report Type: Spontaneous
  Country: US (occurrence: None)
  Receive Date: 20160113
  Receipt Date: 20160113
  Transmission Date: 20160526
  Serious: Yes (Hospitalization)
  Sender: FDA-Public Use
  Company Number: None

PATIENT
  Age: 5 Year
  Sex: Male
  Weight: 26 kg

DRUGS (2)
  1. ALBUTEROL NEBULIZATION 5MG/ML AND 2.5MG/0.5ML NEPHRON [Suspect]
     Active Substance: ALBUTEROL
     Indication: STATUS ASTHMATICUS
     Dosage: 15MG, NEBULIZED
     Dates: start: 20151007
  2. ALBUTEROL NEBULIZATION 5MG/ML AND 2.5MG/0.5ML NEPHRON [Suspect]
     Active Substance: ALBUTEROL
     Indication: BRONCHIAL HYPERREACTIVITY
     Dosage: 15MG, NEBULIZED
     Dates: start: 20151007

REACTIONS (1)
  - Metabolic acidosis [None]

NARRATIVE: CASE EVENT DATE: 20151008
